FAERS Safety Report 19503086 (Version 3)
Quarter: 2021Q3

REPORT INFORMATION
  Report Type: Other
  Country: IT (occurrence: IT)
  Receive Date: 20210707
  Receipt Date: 20210927
  Transmission Date: 20211014
  Serious: Yes (Other)
  Sender: FDA-Public Use
  Company Number: IT-ROCHE-2861991

PATIENT
  Age: 64 Year
  Sex: Male

DRUGS (5)
  1. OCREVUS [Suspect]
     Active Substance: OCRELIZUMAB
     Route: 042
     Dates: start: 20180911
  2. FAMPRIDINE [Concomitant]
     Active Substance: DALFAMPRIDINE
  3. DIBASE [Concomitant]
     Active Substance: CHOLECALCIFEROL
  4. SATIVEX [Concomitant]
     Active Substance: NABIXIMOLS
  5. OCREVUS [Suspect]
     Active Substance: OCRELIZUMAB
     Indication: MULTIPLE SCLEROSIS
     Route: 042
     Dates: start: 20180828

REACTIONS (5)
  - Pyrexia [Recovered/Resolved]
  - Ageusia [Recovered/Resolved]
  - Hyposmia [Recovered/Resolved]
  - Suspected COVID-19 [Recovered/Resolved]
  - Asthenia [Recovered/Resolved]

NARRATIVE: CASE EVENT DATE: 20200305
